FAERS Safety Report 16289086 (Version 1)
Quarter: 2019Q2

REPORT INFORMATION
  Report Type: Spontaneous
  Country: US (occurrence: US)
  Receive Date: 20190509
  Receipt Date: 20190509
  Transmission Date: 20190711
  Serious: Yes (Other)
  Sender: FDA-Public Use
  Company Number: US-GLAXOSMITHKLINE-US2019078945

PATIENT
  Age: 0 Day
  Sex: Female

DRUGS (1)
  1. LAMICTAL XR [Suspect]
     Active Substance: LAMOTRIGINE
     Indication: PRODUCT USED FOR UNKNOWN INDICATION
     Dosage: UNK

REACTIONS (4)
  - Apnoea [Unknown]
  - Neonatal hypoxia [Unknown]
  - Drug level increased [Unknown]
  - Premature baby [Unknown]

NARRATIVE: CASE EVENT DATE: 20190405
